FAERS Safety Report 4930872-3 (Version None)
Quarter: 2006Q1

REPORT INFORMATION
  Report Type: 
  Country: None (occurrence: None)
  Receive Date: 20060227
  Receipt Date: 20060209
  Transmission Date: 20060701
  Serious: Yes (Hospitalization)
  Sender: FDA-Public Use
  Company Number: 2006-0009205

PATIENT
  Age: 56 Year
  Sex: Female
  Weight: 41 kg

DRUGS (4)
  1. VIREAD [Suspect]
     Dosage: 1 DOSAGE FORMS, 1 IN 1 D, ORAL
     Route: 048
     Dates: start: 20050115, end: 20051210
  2. EPIVIR [Concomitant]
  3. KALETRA [Concomitant]
  4. LANZOR (LANSPRAZOLE) [Concomitant]

REACTIONS (4)
  - LUNG DISORDER [None]
  - PYREXIA [None]
  - RENAL FAILURE ACUTE [None]
  - RESPIRATORY DISORDER [None]
